FAERS Safety Report 12171568 (Version 1)
Quarter: 2016Q1

REPORT INFORMATION
  Report Type: Spontaneous
  Country: US (occurrence: None)
  Receive Date: 20160310
  Receipt Date: 20160310
  Transmission Date: 20160526
  Serious: Yes (Hospitalization)
  Sender: FDA-Public Use
  Company Number: None

PATIENT
  Age: 73 Year
  Sex: Male
  Weight: 85.7 kg

DRUGS (2)
  1. GEMCITABINE HYDROCHLORIDE. [Suspect]
     Active Substance: GEMCITABINE HYDROCHLORIDE
     Dates: end: 20151028
  2. XELODA [Suspect]
     Active Substance: CAPECITABINE
     Dates: end: 20151127

REACTIONS (5)
  - Klebsiella bacteraemia [None]
  - Enteritis [None]
  - Dehydration [None]
  - Abdominal pain [None]
  - Chills [None]

NARRATIVE: CASE EVENT DATE: 20151128
